FAERS Safety Report 8838959 (Version 3)
Quarter: 2012Q4

REPORT INFORMATION
  Report Type: 
  Country: JP (occurrence: JP)
  Receive Date: 20121015
  Receipt Date: 20121030
  Transmission Date: 20130627
  Serious: Yes (Other)
  Sender: FDA-Public Use
  Company Number: JP-009507513-1210JPN005435

PATIENT

DRUGS (1)
  1. ZETIA [Suspect]
     Indication: LIPOPROTEIN (A) INCREASED
     Route: 048

REACTIONS (1)
  - Cerebrovascular accident [Unknown]
